FAERS Safety Report 5664411-9 (Version None)
Quarter: 2008Q1

REPORT INFORMATION
  Report Type: 
  Country: None (occurrence: None)
  Receive Date: 20080314
  Receipt Date: 20080229
  Transmission Date: 20080703
  Serious: Yes (Other)
  Sender: FDA-Public Use
  Company Number: TR-AMGEN-US199325

PATIENT
  Age: 35 Year
  Sex: Male

DRUGS (2)
  1. ENBREL [Suspect]
     Indication: PSORIATIC ARTHROPATHY
     Route: 058
     Dates: start: 20050112, end: 20051007
  2. ENBREL [Suspect]
     Indication: PSORIASIS

REACTIONS (2)
  - LIVER FUNCTION TEST ABNORMAL [None]
  - MALIGNANT MELANOMA [None]
